FAERS Safety Report 18209571 (Version 1)
Quarter: 2020Q3

REPORT INFORMATION
  Report Type: Report from Study
  Country: MX (occurrence: MX)
  Receive Date: 20200828
  Receipt Date: 20200828
  Transmission Date: 20201103
  Serious: Yes (Death, Other)
  Sender: FDA-Public Use
  Company Number: MX-GILEAD-2020-0492364

PATIENT
  Age: 61 Year
  Sex: Female

DRUGS (2)
  1. SOFOSBUVIR W/VELPATASVIR [Suspect]
     Active Substance: SOFOSBUVIR\VELPATASVIR
     Indication: HEPATITIS C
     Dosage: 1 DOSAGE FORM, QD
     Route: 048
     Dates: start: 20200723
  2. RIBAVIRIN. [Concomitant]
     Active Substance: RIBAVIRIN

REACTIONS (4)
  - Death [Fatal]
  - General physical condition abnormal [Unknown]
  - Intestinal obstruction [Unknown]
  - Vomiting [Unknown]

NARRATIVE: CASE EVENT DATE: 20200826
